FAERS Safety Report 8322315-7 (Version None)
Quarter: 2012Q2

REPORT INFORMATION
  Report Type: 
  Country: None (occurrence: None)
  Receive Date: 20120430
  Receipt Date: 20120416
  Transmission Date: 20120825
  Serious: Yes (Other)
  Sender: FDA-Public Use
  Company Number: PHHY2012DK032869

PATIENT
  Sex: Male

DRUGS (6)
  1. NEORAL [Suspect]
     Indication: PROPHYLAXIS AGAINST TRANSPLANT REJECTION
     Dosage: UNK UKN, UNK
  2. PREDNISOLONE [Concomitant]
     Dosage: 7.5 MG, DAILY
  3. RAPAMUNE [Concomitant]
  4. MYCOPHENOLATE MOFETIL (CELLCEPT) [Concomitant]
  5. MYFORTIC [Concomitant]
  6. PREDNISOLONE [Concomitant]
     Indication: PROPHYLAXIS
     Dosage: 10 MG, DAILY

REACTIONS (14)
  - SPINAL OSTEOARTHRITIS [None]
  - GOUT [None]
  - RENAL DISORDER [None]
  - RENAL IMPAIRMENT [None]
  - OSTEONECROSIS [None]
  - VASCULAR CALCIFICATION [None]
  - OSTEOPENIA [None]
  - ARTHRALGIA [None]
  - RENAL GRAFT LOSS [None]
  - BLOOD URIC ACID INCREASED [None]
  - NEPHROSCLEROSIS [None]
  - COMPLICATIONS OF TRANSPLANTED KIDNEY [None]
  - BLOOD CALCIUM DECREASED [None]
  - KIDNEY FIBROSIS [None]
